FAERS Safety Report 7936989-3 (Version None)
Quarter: 2011Q4

REPORT INFORMATION
  Report Type: 
  Country: None (occurrence: None)
  Receive Date: 20111123
  Receipt Date: 20111111
  Transmission Date: 20120403
  Serious: Yes (Other)
  Sender: FDA-Public Use
  Company Number: ES-MYLANLABS-2011S1023820

PATIENT
  Age: 7 Decade
  Sex: Female

DRUGS (2)
  1. INFLIXIMAB [Concomitant]
     Indication: RHEUMATOID ARTHRITIS
     Dosage: 200MG EVERY 8WKS
     Route: 065
  2. METHOTREXATE [Suspect]
     Indication: RHEUMATOID ARTHRITIS
     Dosage: 20 MG/WEEK
     Route: 065

REACTIONS (2)
  - INTERSTITIAL LUNG DISEASE [None]
  - HYPERPLASIA [None]
